FAERS Safety Report 15183727 (Version 1)
Quarter: 2018Q3

REPORT INFORMATION
  Report Type: Report from Study
  Country: CA (occurrence: CA)
  Receive Date: 20180723
  Receipt Date: 20180723
  Transmission Date: 20181010
  Serious: Yes (Death, Hospitalization)
  Sender: FDA-Public Use
  Company Number: CA-ACTELION-A-US2018-175809

PATIENT
  Age: 59 Year
  Sex: Female

DRUGS (13)
  1. METOPROLOL. [Concomitant]
     Active Substance: METOPROLOL
  2. RAMIPRIL. [Concomitant]
     Active Substance: RAMIPRIL
  3. CALCIJEX [Concomitant]
     Active Substance: CALCITRIOL
  4. OPSUMIT [Suspect]
     Active Substance: MACITENTAN
     Indication: PULMONARY ARTERIAL HYPERTENSION
     Dosage: 10 MG, UNK
     Route: 048
     Dates: start: 20180105, end: 20180717
  5. LIPITOR [Concomitant]
     Active Substance: ATORVASTATIN CALCIUM
  6. EPO [Concomitant]
     Active Substance: ERYTHROPOIETIN
  7. COUMADIN [Concomitant]
     Active Substance: WARFARIN SODIUM
  8. SENSIPAR [Concomitant]
     Active Substance: CINACALCET HYDROCHLORIDE
  9. ASA [Concomitant]
     Active Substance: ASPIRIN
  10. TYLENOL [Concomitant]
     Active Substance: ACETAMINOPHEN
  11. ADCIRCA [Concomitant]
     Active Substance: TADALAFIL
  12. AMLODIPINE [Concomitant]
     Active Substance: AMLODIPINE BESYLATE
  13. IRON [Concomitant]
     Active Substance: IRON

REACTIONS (2)
  - Pulmonary hypertension [Fatal]
  - Disease progression [Fatal]
